FAERS Safety Report 4665421-0 (Version None)
Quarter: 2005Q2

REPORT INFORMATION
  Report Type: 
  Country: None (occurrence: None)
  Receive Date: 20050518
  Receipt Date: 20050518
  Transmission Date: 20051028
  Serious: Yes (Hospitalization)
  Sender: FDA-Public Use
  Company Number: None

PATIENT
  Sex: Male

DRUGS (22)
  1. LORAZEPAM [Suspect]
     Indication: ANXIETY
     Dosage: 0.5MG HS ORAL
     Route: 048
     Dates: start: 20050113, end: 20050115
  2. CLONAZEPAM [Suspect]
     Indication: ANXIETY
     Dosage: 1MG/0.5MG  AM/BID
  3. ALBUTEROL [Concomitant]
  4. AMANTADINE HCL [Concomitant]
  5. ASPIRIN [Concomitant]
  6. CARVEDILOL [Concomitant]
  7. DIGOXIN [Concomitant]
  8. FINASTERIDE [Concomitant]
  9. FUROSEMIDE [Concomitant]
  10. GLYBURIDE [Concomitant]
  11. INSULIN [Concomitant]
  12. IPRATROPIUM BROMIDE [Concomitant]
  13. LACTULOSE [Concomitant]
  14. LIDOCAINE [Concomitant]
  15. LISINOPRIL [Concomitant]
  16. MIRTAZAPINE [Concomitant]
  17. MORPHINE [Concomitant]
  18. NITROGLYCERIN [Concomitant]
  19. POTASSIUM CHLORIDE [Concomitant]
  20. SENNA [Concomitant]
  21. TERAZOSIN [Concomitant]
  22. WARFARIN [Concomitant]

REACTIONS (1)
  - FALL [None]
